FAERS Safety Report 4444806-1 (Version None)
Quarter: 2004Q3

REPORT INFORMATION
  Report Type: 
  Country: None (occurrence: None)
  Receive Date: 20040907
  Receipt Date: 20040907
  Transmission Date: 20050211
  Serious: Yes (Death)
  Sender: FDA-Public Use
  Company Number: None

PATIENT
  Age: 39 Year
  Sex: Male
  Weight: 75.7507 kg

DRUGS (2)
  1. MOTRIN [Suspect]
     Indication: LIMB INJURY
     Dosage: 600 MG TID
     Dates: start: 20040818
  2. MOTRIN [Suspect]
     Indication: PAIN
     Dosage: 600 MG TID
     Dates: start: 20040818

REACTIONS (4)
  - GASTROINTESTINAL DISORDER [None]
  - HEPATIC FAILURE [None]
  - METABOLIC ACIDOSIS [None]
  - RENAL FAILURE [None]
